FAERS Safety Report 7804566-0 (Version None)
Quarter: 2011Q4

REPORT INFORMATION
  Report Type: 
  Country: None (occurrence: None)
  Receive Date: 20111010
  Receipt Date: 20111005
  Transmission Date: 20120403
  Serious: Yes (Hospitalization, Other)
  Sender: FDA-Public Use
  Company Number: US-PFIZER INC-2011154076

PATIENT
  Sex: Male

DRUGS (1)
  1. CHANTIX [Suspect]
     Indication: SMOKING CESSATION THERAPY
     Dosage: START PAK AND CONTINUNING MONTH PAK 1 MG
     Dates: start: 20080404, end: 20100305

REACTIONS (5)
  - SUICIDAL IDEATION [None]
  - NIGHTMARE [None]
  - ANXIETY [None]
  - EPILEPSY [None]
  - DEPRESSION [None]
